FAERS Safety Report 24122850 (Version 5)
Quarter: 2025Q2

REPORT INFORMATION
  Report Type: Spontaneous
  Country: US (occurrence: US)
  Receive Date: 20240723
  Receipt Date: 20250513
  Transmission Date: 20250717
  Serious: No
  Sender: SANOFI AVENTIS
  Company Number: US-SA-SAC20240716000588

PATIENT
  Age: 67 Year
  Sex: Female
  Weight: 63 kg

DRUGS (26)
  1. REZUROCK [Suspect]
     Active Substance: BELUMOSUDIL
     Indication: Chronic graft versus host disease
     Dosage: 200 MG, QD
     Route: 048
     Dates: start: 20221221
  2. HUMALOG [Concomitant]
     Active Substance: INSULIN LISPRO
  3. NYSTATIN [Concomitant]
     Active Substance: NYSTATIN
     Route: 048
  4. RESTASIS [Concomitant]
     Active Substance: CYCLOSPORINE
     Route: 047
  5. CHOLECALCIFEROL [Concomitant]
     Active Substance: CHOLECALCIFEROL
  6. ATORVASTATIN [Concomitant]
     Active Substance: ATORVASTATIN
  7. TYLENOL [Concomitant]
     Active Substance: ACETAMINOPHEN
  8. PROLIA [Concomitant]
     Active Substance: DENOSUMAB
  9. FLUCONAZOLE [Concomitant]
     Active Substance: FLUCONAZOLE
  10. TYRVAYA [Concomitant]
     Active Substance: VARENICLINE TARTRATE
     Route: 045
  11. ZOLPIDEM [Concomitant]
     Active Substance: ZOLPIDEM TARTRATE
  12. ESTRADIOL [Concomitant]
     Active Substance: ESTRADIOL
  13. CALCIUM [Concomitant]
     Active Substance: CALCIUM
  14. FAMOTIDINE [Concomitant]
     Active Substance: FAMOTIDINE
  15. DAPSONE [Concomitant]
     Active Substance: DAPSONE
  16. TRIAMCINOLONE [Concomitant]
     Active Substance: TRIAMCINOLONE
  17. BETAMETHASONE DIPROPIONATE [Concomitant]
     Active Substance: BETAMETHASONE DIPROPIONATE
  18. ACETAMINOPHEN [Concomitant]
     Active Substance: ACETAMINOPHEN
  19. FLUTICASONE [Concomitant]
     Active Substance: FLUTICASONE
  20. REFRESH PLUS [Concomitant]
     Active Substance: CARBOXYMETHYLCELLULOSE SODIUM
  21. HYDROQUINONE [Concomitant]
     Active Substance: HYDROQUINONE
  22. DEXAMETHASONE [Concomitant]
     Active Substance: DEXAMETHASONE
  23. VITAMIN D3 [Concomitant]
     Active Substance: CHOLECALCIFEROL
  24. CALCIUM CARBONATE [Concomitant]
     Active Substance: CALCIUM CARBONATE
  25. APAP [Concomitant]
     Active Substance: ACETAMINOPHEN
  26. REFRESH [POVIDONE] [Concomitant]
     Route: 047

REACTIONS (4)
  - Bone loss [Unknown]
  - Asthenia [Unknown]
  - Fatigue [Recovering/Resolving]
  - Neutrophil count decreased [Recovering/Resolving]
